FAERS Safety Report 26207467 (Version 1)
Quarter: 2025Q4

REPORT INFORMATION
  Report Type: Spontaneous
  Country: EU (occurrence: EU)
  Receive Date: 20251229
  Receipt Date: 20251229
  Transmission Date: 20260117
  Serious: Yes (Hospitalization, Other)
  Sender: BAXTER
  Company Number: None

PATIENT
  Sex: Male

DRUGS (1)
  1. IFOSFAMIDE [Suspect]
     Active Substance: IFOSFAMIDE
     Indication: Neoplasm malignant
     Dosage: UNK (POWDER FOR SOLUTION FOR INFUSION)
     Route: 065
     Dates: start: 20251126

REACTIONS (9)
  - Hyperreflexia [Recovered/Resolved]
  - Encephalopathy [Recovered/Resolved]
  - Restlessness [Recovered/Resolved]
  - Agitation [Recovered/Resolved]
  - Tremor [Recovered/Resolved]
  - Disorientation [Recovered/Resolved]
  - Abdominal pain [Recovered/Resolved]
  - Gait disturbance [Recovered/Resolved]
  - Asterixis [Recovered/Resolved]

NARRATIVE: CASE EVENT DATE: 20251128
